FAERS Safety Report 10360730 (Version 5)
Quarter: 2016Q1

REPORT INFORMATION
  Report Type: Spontaneous
  Country: US (occurrence: US)
  Receive Date: 20140804
  Receipt Date: 20160324
  Transmission Date: 20160525
  Serious: Yes (Hospitalization, Other)
  Sender: FDA-Public Use
  Company Number: US-GLAXOSMITHKLINE-A0994523A

PATIENT
  Age: 58 Year
  Sex: Female

DRUGS (5)
  1. VENTOLIN [Suspect]
     Active Substance: ALBUTEROL SULFATE
     Indication: ASTHMA
     Dosage: 90 MCG
     Route: 065
     Dates: start: 2006
  2. ADVAIR DISKUS [Suspect]
     Active Substance: FLUTICASONE PROPIONATE\SALMETEROL XINAFOATE
     Indication: ASTHMA
     Dosage: UNK, U
     Route: 055
     Dates: start: 20050901
  3. ADVAIR DISKUS [Suspect]
     Active Substance: FLUTICASONE PROPIONATE\SALMETEROL XINAFOATE
     Dosage: UNK
  4. ADVAIR DISKUS [Suspect]
     Active Substance: FLUTICASONE PROPIONATE\SALMETEROL XINAFOATE
     Dosage: UNK
     Dates: start: 2006
  5. VENTOLIN [Suspect]
     Active Substance: ALBUTEROL SULFATE
     Dosage: UNK UNK, U

REACTIONS (13)
  - Arthropod bite [Unknown]
  - Joint injury [Unknown]
  - Drug administration error [Unknown]
  - Incorrect product storage [Unknown]
  - Dyspnoea [Unknown]
  - Fall [Unknown]
  - Expired product administered [Unknown]
  - Skeletal injury [Unknown]
  - Visual acuity reduced [Unknown]
  - Road traffic accident [Unknown]
  - Memory impairment [Unknown]
  - Muscle spasms [Unknown]
  - Head injury [Unknown]

NARRATIVE: CASE EVENT DATE: 201602
